FAERS Safety Report 5091280-0 (Version None)
Quarter: 2006Q3

REPORT INFORMATION
  Report Type: 
  Country: None (occurrence: None)
  Receive Date: 20060829
  Receipt Date: 20060824
  Transmission Date: 20061208
  Serious: Yes (Disabling)
  Sender: FDA-Public Use
  Company Number: GB-AVENTIS-200618840GDDC

PATIENT
  Age: 52 Year
  Sex: Female

DRUGS (13)
  1. DDAVP [Suspect]
     Indication: DIABETES INSIPIDUS
     Route: 048
     Dates: start: 20041201, end: 20050701
  2. AMOXICILLIN [Concomitant]
     Route: 048
  3. BECLOMETHASONE DIPROPIONATE [Concomitant]
     Route: 055
  4. ACETAMINOPHEN W/ CODEINE [Concomitant]
     Route: 048
  5. CREON [Concomitant]
     Route: 048
  6. FEMATRIX [Concomitant]
     Route: 062
  7. HYGROTON [Concomitant]
     Route: 048
  8. IBUPROFEN [Concomitant]
     Route: 048
  9. LACTULOSE [Concomitant]
     Route: 048
  10. QUININE SULFATE [Concomitant]
     Route: 048
  11. ALBUTEROL SPIROS [Concomitant]
     Route: 055
  12. SENNA [Concomitant]
     Route: 048
  13. ZOPICLONE [Concomitant]
     Route: 048

REACTIONS (2)
  - CONVULSION [None]
  - GRAND MAL CONVULSION [None]
